FAERS Safety Report 8841210 (Version 1)
Quarter: 2012Q4

REPORT INFORMATION
  Report Type: 
  Country: FR (occurrence: FR)
  Receive Date: 20121015
  Receipt Date: 20121015
  Transmission Date: 20130627
  Serious: Yes (Death)
  Sender: FDA-Public Use
  Company Number: FR-BRISTOL-MYERS SQUIBB COMPANY-17019373

PATIENT
  Age: 53 Year
  Sex: Female

DRUGS (3)
  1. TAXOL INJ [Suspect]
     Dosage: Thry:18Mr4,8Ar,19My,9Jun,12Jl,3Ag4,2Jun8,23Jun,21Jl,14Ag,12Sp,10Ot8
     Route: 042
     Dates: start: 20040318, end: 20081010
  2. CARBOPLATIN [Suspect]
     Dosage: 18Mr4,8Ar,19My,9Jun,12Jl,3Ag4,2Jun823Jun21Jl14Ag12Sp10Ot8,11Jun929Jl8Sp,13Ot,10Nv,8Dc9,28Ot10,5My11
     Route: 042
     Dates: start: 20040318, end: 20110505
  3. CAELYX [Suspect]
     Dosage: 1df:2mg/ml sol for inf,Ther:18Mar04-03Au,11Jun9,29Jl,8Sp,13Ot,10Nv,8Dc9,28Ot10,5My11
     Route: 042
     Dates: start: 20090611, end: 20110505

REACTIONS (1)
  - Acute myeloid leukaemia [Fatal]
